FAERS Safety Report 24934760 (Version 1)
Quarter: 2025Q1

REPORT INFORMATION
  Report Type: Spontaneous
  Country: SK (occurrence: SK)
  Receive Date: 20250206
  Receipt Date: 20250206
  Transmission Date: 20250409
  Serious: Yes (Other)
  Sender: GLENMARK
  Company Number: SK-GLENMARK PHARMACEUTICALS-2025GMK097498

PATIENT

DRUGS (3)
  1. ABIRATERONE ACETATE [Interacting]
     Active Substance: ABIRATERONE ACETATE
     Indication: Hormone-dependent prostate cancer
     Dosage: 1000 MILLIGRAM, QD
     Route: 065
     Dates: start: 202207, end: 202309
  2. PREDNISONE [Interacting]
     Active Substance: PREDNISONE
     Indication: Hormone-dependent prostate cancer
     Dosage: 5 MILLIGRAM, QD
     Route: 065
     Dates: start: 202207, end: 202309
  3. DENOSUMAB [Concomitant]
     Active Substance: DENOSUMAB
     Indication: Hormone-dependent prostate cancer
     Route: 058
     Dates: start: 202207

REACTIONS (3)
  - Drug interaction [Unknown]
  - Rheumatoid arthritis [Unknown]
  - Gastrointestinal toxicity [Unknown]
